FAERS Safety Report 13962551 (Version 1)
Quarter: 2017Q3

REPORT INFORMATION
  Report Type: Spontaneous
  Country: GB (occurrence: GB)
  Receive Date: 20170913
  Receipt Date: 20170913
  Transmission Date: 20171128
  Serious: Yes (Other)
  Sender: FDA-Public Use
  Company Number: GB-DEXPHARM-20171239

PATIENT
  Age: 88 Year
  Sex: Male
  Weight: 78 kg

DRUGS (12)
  1. HYPROMELLOSE [Concomitant]
     Active Substance: HYPROMELLOSES
     Dates: start: 20161024
  2. PREDNISOLONE. [Concomitant]
     Active Substance: PREDNISOLONE
     Dosage: TAKE 8 IMMEDIATELY AND THEN 8 EACH DAY FOR 3 DAYS
     Dates: start: 20170731, end: 20170805
  3. CLARITHROMYCIN. [Concomitant]
     Active Substance: CLARITHROMYCIN
     Dosage: DAILY DOSE: 1 DF DOSAGE FORM EVERY 12 HOURS
     Dates: start: 20170731, end: 20170807
  4. CLENIL MODULATE [Concomitant]
     Dosage: DAILY DOSE: 4 DF DOSAGE FORM EVERY DAYS
     Dates: start: 20161024
  5. GAVISCON ADVANCE [Concomitant]
     Active Substance: POTASSIUM BICARBONATE\SODIUM ALGINATE
     Dosage: TWO 5ML SPOONS.
     Dates: start: 20161024
  6. RANITIDINE. [Concomitant]
     Active Substance: RANITIDINE
     Dosage: NIGHT.
     Dates: start: 20170821
  7. ALGESAL [Concomitant]
     Active Substance: DIETHYLAMINE SALICYLATE
     Dosage: APPLY 2-3 TIMES A DAY.
     Dates: start: 20170728, end: 20170729
  8. VENTOLIN [Concomitant]
     Active Substance: ALBUTEROL SULFATE
     Dosage: FOUR TIMES A DAY.AS NECESSARY
     Route: 055
     Dates: start: 20161024
  9. COCODAMOL [Concomitant]
     Active Substance: ACETAMINOPHEN\CODEINE PHOSPHATE
     Indication: PAIN
     Dosage: TAKE 1- 2 TABLETS EVERY FOUR TO SIX HOURS WHEN NEEDED FOR PAIN.
     Dates: start: 20170725, end: 20170808
  10. EFUDIX [Concomitant]
     Active Substance: FLUOROURACIL
     Dosage: USE AS DIRECTED.
     Dates: start: 20170725, end: 20170822
  11. OMEPRAZOLE. [Suspect]
     Active Substance: OMEPRAZOLE
     Dates: start: 20161024
  12. LANSOPRAZOLE. [Suspect]
     Active Substance: LANSOPRAZOLE

REACTIONS (1)
  - Arthralgia [Recovered/Resolved]

NARRATIVE: CASE EVENT DATE: 20170823
